FAERS Safety Report 4569360-5 (Version None)
Quarter: 2005Q1

REPORT INFORMATION
  Report Type: 
  Country: None (occurrence: None)
  Receive Date: 20050201
  Receipt Date: 20050121
  Transmission Date: 20050727
  Serious: Yes (Other)
  Sender: FDA-Public Use
  Company Number: 2004092566

PATIENT
  Age: 53 Year
  Sex: Male

DRUGS (2)
  1. LIPITOR [Suspect]
     Indication: ILL-DEFINED DISORDER
     Dosage: 20 MG
  2. TADALAFIL (TADALAFIL) [Suspect]
     Indication: ILL-DEFINED DISORDER
     Dosage: 5 MG
     Dates: end: 20040101

REACTIONS (6)
  - BACK PAIN [None]
  - DRUG INTERACTION [None]
  - MIDDLE INSOMNIA [None]
  - MYALGIA [None]
  - PAIN IN EXTREMITY [None]
  - RADICAL PROSTATECTOMY [None]
